FAERS Safety Report 23439952 (Version 2)
Quarter: 2024Q4

REPORT INFORMATION
  Report Type: Spontaneous
  Country: US (occurrence: US)
  Receive Date: 20240124
  Receipt Date: 20241104
  Transmission Date: 20250115
  Serious: Yes (Other)
  Sender: PFIZER
  Company Number: US-PFIZER INC-PV202400010240

PATIENT
  Age: 57 Year
  Sex: Female

DRUGS (4)
  1. IBRANCE [Suspect]
     Active Substance: PALBOCICLIB
     Indication: Breast cancer metastatic
     Dosage: 125 MG, DAILY
     Route: 048
     Dates: start: 201908
  2. IBRANCE [Suspect]
     Active Substance: PALBOCICLIB
     Dosage: 100 MG, DAILY
     Route: 048
  3. IBRANCE [Suspect]
     Active Substance: PALBOCICLIB
     Dosage: 3 WEEKS ON, 1 WEEK OFF
  4. LETROZOLE [Suspect]
     Active Substance: LETROZOLE
     Indication: Breast cancer metastatic
     Dosage: UNK
     Dates: start: 201907

REACTIONS (16)
  - Spinal stenosis [Unknown]
  - Back pain [Unknown]
  - Platelet count decreased [Unknown]
  - Alopecia [Unknown]
  - Hot flush [Unknown]
  - Fatigue [Unknown]
  - Menopause [Unknown]
  - Asthenia [Unknown]
  - White blood cell count decreased [Unknown]
  - Malaise [Unknown]
  - Depressed mood [Unknown]
  - Arthritis [Unknown]
  - Bone loss [Unknown]
  - COVID-19 [Not Recovered/Not Resolved]
  - Exercise tolerance decreased [Not Recovered/Not Resolved]
  - Hypersomnia [Not Recovered/Not Resolved]
